FAERS Safety Report 6699781-6 (Version None)
Quarter: 2010Q2

REPORT INFORMATION
  Report Type: 
  Country: None (occurrence: None)
  Receive Date: 20100428
  Receipt Date: 20100329
  Transmission Date: 20101027
  Serious: No
  Sender: FDA-Public Use
  Company Number: A0852405A

PATIENT
  Sex: Female

DRUGS (1)
  1. HYDROCORTISONE [Suspect]
     Indication: ADDISON'S DISEASE
     Dosage: 10MG UNKNOWN
     Route: 048

REACTIONS (1)
  - HYPERSENSITIVITY [None]
